FAERS Safety Report 8739288 (Version 2)
Quarter: 2012Q4

REPORT INFORMATION
  Report Type: 
  Country: US (occurrence: US)
  Receive Date: 20120823
  Receipt Date: 20121031
  Transmission Date: 20130627
  Serious: Yes (Hospitalization, Other)
  Sender: FDA-Public Use
  Company Number: US-ELI_LILLY_AND_COMPANY-US201208004358

PATIENT
  Age: 49 Year
  Sex: Male
  Weight: 109.7 kg

DRUGS (4)
  1. HUMULIN REGULAR [Suspect]
     Indication: DIABETES MELLITUS
     Dosage: UNK, unknown
     Dates: start: 20020316
  2. HUMULIN REGULAR [Suspect]
     Dosage: 35 u, prn
  3. HUMULIN NPH [Suspect]
     Indication: DIABETES MELLITUS
     Dosage: UNK, unknown
     Dates: start: 20020316
  4. HUMULIN NPH [Suspect]
     Dosage: 60 u, UNK

REACTIONS (6)
  - Cardiac disorder [Unknown]
  - Arterial thrombosis [Unknown]
  - Chest pain [Unknown]
  - Pulmonary thrombosis [Unknown]
  - Stent placement [Unknown]
  - Fatigue [Not Recovered/Not Resolved]
